FAERS Safety Report 12647179 (Version 1)
Quarter: 2016Q3

REPORT INFORMATION
  Report Type: Spontaneous
  Country: US (occurrence: None)
  Receive Date: 20160811
  Receipt Date: 20160811
  Transmission Date: 20161109
  Serious: No
  Sender: FDA-Public Use
  Company Number: None

PATIENT
  Age: 28 Year
  Sex: Female

DRUGS (1)
  1. ADDERALL XR [Suspect]
     Active Substance: AMPHETAMINE ASPARTATE\AMPHETAMINE SULFATE\DEXTROAMPHETAMINE SACCHARATE\DEXTROAMPHETAMINE SULFATE
     Indication: ATTENTION DEFICIT/HYPERACTIVITY DISORDER
     Dosage: 30 CAPSULE (S) IN THE MORNING TAKEN BY MOUTH
     Route: 048
     Dates: start: 20160723

REACTIONS (8)
  - Migraine [None]
  - Confusional state [None]
  - Depression [None]
  - Tinnitus [None]
  - Dizziness [None]
  - Vision blurred [None]
  - Dysgeusia [None]
  - Nausea [None]

NARRATIVE: CASE EVENT DATE: 20160801
